FAERS Safety Report 4290982-3 (Version None)
Quarter: 2004Q1

REPORT INFORMATION
  Report Type: 
  Country: None (occurrence: None)
  Receive Date: 20040209
  Receipt Date: 20040204
  Transmission Date: 20041129
  Serious: Yes (Other)
  Sender: FDA-Public Use
  Company Number: ES-JNJFOC-20040101281

PATIENT
  Age: 49 Year
  Sex: Female
  Weight: 70 kg

DRUGS (1)
  1. REMICADE [Suspect]
     Indication: RHEUMATOID ARTHRITIS
     Dosage: 350 MG, INTRAVENOUS
     Route: 042
     Dates: start: 20030807, end: 20030807

REACTIONS (5)
  - ANXIETY [None]
  - BACK PAIN [None]
  - CHILLS [None]
  - DYSPNOEA [None]
  - HYPERTENSION [None]
